FAERS Safety Report 9735451 (Version 2)
Quarter: 2015Q3

REPORT INFORMATION
  Report Type: Spontaneous
  Country: US (occurrence: US)
  Receive Date: 20131206
  Receipt Date: 20150804
  Transmission Date: 20151125
  Serious: No
  Sender: FDA-Public Use
  Company Number: US-GILEAD-2009-0022870

PATIENT
  Age: 76 Year
  Sex: Female
  Weight: 63.05 kg

DRUGS (15)
  1. FLECAINIDE [Concomitant]
     Active Substance: FLECAINIDE
  2. MIAPEX [Concomitant]
  3. TUMS [Concomitant]
     Active Substance: CALCIUM CARBONATE
  4. ^APPUREX^ [Concomitant]
  5. DIAZEPAM. [Concomitant]
     Active Substance: DIAZEPAM
  6. PROVENTIL HFA [Concomitant]
     Active Substance: ALBUTEROL SULFATE
  7. TOPROL XL [Concomitant]
     Active Substance: METOPROLOL SUCCINATE
  8. PREVACID [Concomitant]
     Active Substance: LANSOPRAZOLE
  9. LETAIRIS [Suspect]
     Active Substance: AMBRISENTAN
     Indication: PULMONARY ARTERIAL HYPERTENSION
     Route: 048
     Dates: start: 20090224
  10. LASIX [Concomitant]
     Active Substance: FUROSEMIDE
  11. VERAMYST [Concomitant]
     Active Substance: FLUTICASONE FUROATE
  12. OXYGEN. [Concomitant]
     Active Substance: OXYGEN
  13. HYDROCHLOROTHIAZIDE/LOSARTAN POTASSIUM [Concomitant]
  14. ADVAIR 250-50 [Concomitant]
  15. WARFARIN [Concomitant]
     Active Substance: WARFARIN

REACTIONS (3)
  - Palpitations [Unknown]
  - Heart rate increased [Unknown]
  - Hypotension [Unknown]
